FAERS Safety Report 6911056-6 (Version None)
Quarter: 2010Q3

REPORT INFORMATION
  Report Type: 
  Country: None (occurrence: None)
  Receive Date: 20100806
  Receipt Date: 20100804
  Transmission Date: 20110219
  Serious: Yes (Hospitalization)
  Sender: FDA-Public Use
  Company Number: R0012710A

PATIENT
  Sex: Male

DRUGS (5)
  1. PANDEMRIX H1N1 [Suspect]
     Dosage: 3.75MCG PER DAY
     Route: 030
     Dates: start: 20091202, end: 20091202
  2. ALBUTEROL [Suspect]
     Indication: ASTHMA
     Dosage: 200MCG PER DAY
     Route: 055
     Dates: start: 20091223
  3. MENINGITIS C + HIB VACCINE [Concomitant]
     Dates: start: 20080403, end: 20080403
  4. M-M-R II [Concomitant]
     Dates: start: 20080605, end: 20080605
  5. PNEUMOCOCCAL POLYSACCHARIDE VACCINE [Concomitant]
     Dates: start: 20080605, end: 20080605

REACTIONS (1)
  - ASTHMA [None]
